FAERS Safety Report 20601402 (Version 2)
Quarter: 2022Q2

REPORT INFORMATION
  Report Type: Report from Study
  Country: DE (occurrence: DE)
  Receive Date: 20220316
  Receipt Date: 20220408
  Transmission Date: 20220720
  Serious: Yes (Hospitalization, Other)
  Sender: FDA-Public Use
  Company Number: DE-002147023-NVSC2022DE015186

PATIENT
  Sex: Female
  Weight: 90 kg

DRUGS (8)
  1. LETROZOLE [Suspect]
     Active Substance: LETROZOLE
     Indication: Breast cancer metastatic
     Dosage: 2.5 MILLIGRAM, QD, (2.5 MG, QD (DAILY DOSE))
     Route: 048
     Dates: start: 20201029
  2. KISQALI [Suspect]
     Active Substance: RIBOCICLIB
     Indication: Breast cancer metastatic
     Dosage: 600 MILLIGRAM, QD (600 MG, QD (SCHEMA 21 DAYS INTAKE. 7 DAYS PAUSE))
     Route: 048
     Dates: start: 20201029, end: 20201111
  3. KISQALI [Suspect]
     Active Substance: RIBOCICLIB
     Dosage: 600 MILLIGRAM, QD (600 MG QD (SCHEMA 21 DAYS INTAKE. 7 DAYS PAUSE))
     Route: 048
     Dates: start: 20201126, end: 20201207
  4. KISQALI [Suspect]
     Active Substance: RIBOCICLIB
     Dosage: 600 MILLIGRAM, QD (600 MG, QD (SCHEMA 21 DAYS INTAKE. 7 DAYS PAUSE)
     Route: 048
     Dates: start: 20201209, end: 20201223
  5. KISQALI [Suspect]
     Active Substance: RIBOCICLIB
     Dosage: 600 MILLIGRAM, QD (600 MG, QD (SCHEMA 21 DAYS INTAKE. 7 DAYS PAUSE))
     Route: 048
     Dates: start: 20201230, end: 20210217
  6. KISQALI [Suspect]
     Active Substance: RIBOCICLIB
     Dosage: 600 MILLIGRAM, QD (600 MG, QD (SCHEMA 21 DAYS INTAKE. 7 DAYS PAUSE))
     Route: 048
     Dates: start: 20210303, end: 20210324
  7. KISQALI [Suspect]
     Active Substance: RIBOCICLIB
     Dosage: 600 MILLIGRAM, QD (600 MG, QD (SCHEMA 21 DAYS INTAKE. 7 DAYS PAUSE))
     Route: 048
     Dates: start: 20210407, end: 20210526
  8. KISQALI [Suspect]
     Active Substance: RIBOCICLIB
     Dosage: 600 MILLIGRAM, QD (600 MG, QD (SCHEMA 21 DAYS INTAKE. 7 DAYS PAUSE))
     Route: 048
     Dates: start: 20210610, end: 20210630

REACTIONS (5)
  - Headache [Recovered/Resolved]
  - Urinary tract infection [Recovered/Resolved]
  - Nausea [Recovered/Resolved]
  - Vomiting [Recovered/Resolved]
  - Borrelia infection [Recovered/Resolved]

NARRATIVE: CASE EVENT DATE: 20210904
